FAERS Safety Report 7189396-8 (Version None)
Quarter: 2010Q4

REPORT INFORMATION
  Report Type: 
  Country: None (occurrence: None)
  Receive Date: 20101222
  Receipt Date: 20100919
  Transmission Date: 20110411
  Serious: No
  Sender: FDA-Public Use
  Company Number: US-AMGEN-KDL425555

PATIENT

DRUGS (4)
  1. ENBREL [Suspect]
     Indication: RHEUMATOID ARTHRITIS
     Dosage: 50 MG, QWK
     Route: 058
     Dates: start: 20040201
  2. ENBREL [Suspect]
     Indication: PSORIASIS
     Dosage: 50 MG, QWK
     Route: 058
     Dates: start: 20040201
  3. ENBREL [Suspect]
     Indication: PSORIATIC ARTHROPATHY
  4. METHOTREXATE [Concomitant]

REACTIONS (4)
  - BACK PAIN [None]
  - DYSURIA [None]
  - ECZEMA [None]
  - PSORIASIS [None]
